FAERS Safety Report 7511834-9 (Version None)
Quarter: 2011Q2

REPORT INFORMATION
  Report Type: 
  Country: None (occurrence: None)
  Receive Date: 20110531
  Receipt Date: 20110525
  Transmission Date: 20111010
  Serious: Yes (Disabling)
  Sender: FDA-Public Use
  Company Number: CA-PFIZER INC-2011114273

PATIENT
  Age: 30 Year
  Sex: Female

DRUGS (2)
  1. ALESSE [Concomitant]
     Dosage: UNK
  2. VARENICLINE TARTRATE [Suspect]
     Indication: SMOKING CESSATION THERAPY
     Dosage: FIRST STARTER, THEN MAINTENANCE ROUND
     Route: 048
     Dates: start: 20110201, end: 20110308

REACTIONS (6)
  - HEADACHE [None]
  - MUSCLE TWITCHING [None]
  - FEELING ABNORMAL [None]
  - NAUSEA [None]
  - THROAT TIGHTNESS [None]
  - MOOD SWINGS [None]
